FAERS Safety Report 13140669 (Version 2)
Quarter: 2017Q1

REPORT INFORMATION
  Report Type: Spontaneous
  Country: KR (occurrence: KR)
  Receive Date: 20170123
  Receipt Date: 20170314
  Transmission Date: 20170428
  Serious: Yes (Hospitalization, Other)
  Sender: FDA-Public Use
  Company Number: KR-009507513-1701KOR008826

PATIENT
  Age: 60 Year
  Sex: Female
  Weight: 60.3 kg

DRUGS (29)
  1. DEXAMETHASONE SODIUM PHOSPHATE. [Concomitant]
     Active Substance: DEXAMETHASONE SODIUM PHOSPHATE
     Indication: PREMEDICATION
     Dosage: STRENGTH: 5MG/ML, DOSE: 10 MG, ONCE
     Route: 042
     Dates: start: 20160425, end: 20160425
  2. MUTERAN [Concomitant]
     Active Substance: ACETYLCYSTEINE
     Indication: COUGH
     Dosage: 600 MG (3 CAPSULE), ONCE
     Route: 048
     Dates: start: 20160424, end: 20160424
  3. XARELTO [Concomitant]
     Active Substance: RIVAROXABAN
     Indication: PROPHYLAXIS
     Dosage: 1 TABLET, 20 MG, QD
     Route: 048
     Dates: start: 2016, end: 20160602
  4. ALDACTONE [Concomitant]
     Active Substance: SPIRONOLACTONE
     Indication: PROPHYLAXIS
     Dosage: 0.5 TABLET, BID
     Route: 048
     Dates: start: 20160424, end: 20160509
  5. SMECTA [Concomitant]
     Active Substance: MONTMORILLONITE
     Indication: DIARRHOEA
     Dosage: 1 PK, TID
     Route: 048
     Dates: start: 20160423, end: 20160424
  6. EMEND (FOSAPREPITANT DIMEGLUMINE) [Suspect]
     Active Substance: FOSAPREPITANT DIMEGLUMINE
     Indication: PROPHYLAXIS OF NAUSEA AND VOMITING
     Dosage: 150 MG, ONCE
     Route: 042
     Dates: start: 20160402, end: 20160402
  7. MUTERAN [Concomitant]
     Active Substance: ACETYLCYSTEINE
     Indication: PRODUCTIVE COUGH
  8. MANNITOL. [Concomitant]
     Active Substance: MANNITOL
     Indication: PREMEDICATION
     Dosage: STRENGTH: 20%/100ML, DOSE: 70 MG, ONCE
     Route: 042
     Dates: start: 20160425, end: 20160425
  9. PANTOLINE TABLETS [Concomitant]
     Indication: PROPHYLAXIS
     Dosage: 1 TABLET, 20 MG, QD
     Route: 048
     Dates: start: 2016
  10. DEXAMETHASONE. [Concomitant]
     Active Substance: DEXAMETHASONE
     Indication: PROPHYLAXIS
     Dosage: 8 MG, UNK
     Route: 048
     Dates: start: 20160426, end: 20160428
  11. ALOXI [Concomitant]
     Active Substance: PALONOSETRON HYDROCHLORIDE
     Indication: PREMEDICATION
     Dosage: 0.25 ML, ONCE
     Route: 042
     Dates: start: 20160425, end: 20160425
  12. PENIRAMIN [Concomitant]
     Indication: PROPHYLAXIS
     Dosage: 1 AMP., ONCE
     Route: 058
     Dates: start: 20160425, end: 20160425
  13. LYRICA [Concomitant]
     Active Substance: PREGABALIN
     Indication: PROPHYLAXIS
     Dosage: 225 MG, QD
     Route: 048
     Dates: start: 2016, end: 20160602
  14. EMEND (FOSAPREPITANT DIMEGLUMINE) [Suspect]
     Active Substance: FOSAPREPITANT DIMEGLUMINE
     Dosage: 150 MG, ONCE
     Route: 042
     Dates: start: 20160425, end: 20160425
  15. MACPERAN [Concomitant]
     Active Substance: METOCLOPRAMIDE HYDROCHLORIDE
     Indication: PROPHYLAXIS OF NAUSEA AND VOMITING
     Dosage: 1 TABLET, TID
     Route: 048
     Dates: start: 20160427, end: 20160509
  16. CISPLATIN. [Concomitant]
     Active Substance: CISPLATIN
     Indication: CERVIX CARCINOMA
     Dosage: STRENGTH: 50 MG/100 ML; 50 MG, ONCE, CYCLE 11
     Route: 042
     Dates: start: 20160425, end: 20160425
  17. CORTISOLU [Concomitant]
     Active Substance: HYDROCORTISONE SODIUM SUCCINATE
     Indication: PROPHYLAXIS
     Dosage: 100 MG, ONCE
     Route: 042
     Dates: start: 20160425, end: 20160425
  18. HEPARIN SODIUM. [Concomitant]
     Active Substance: HEPARIN SODIUM
     Indication: PROPHYLAXIS
     Dosage: 1 ML, ONCE
     Route: 042
     Dates: start: 20160422, end: 20160422
  19. EMEND (FOSAPREPITANT DIMEGLUMINE) [Suspect]
     Active Substance: FOSAPREPITANT DIMEGLUMINE
     Dosage: 150 MG, ONCE
     Route: 042
     Dates: start: 20160605, end: 20160605
  20. AVASTIN [Concomitant]
     Active Substance: BEVACIZUMAB
     Indication: CERVIX CARCINOMA
     Dosage: 900 MG, ONCE, CYCLE 11
     Route: 042
     Dates: start: 20160420, end: 20160420
  21. BESZYME [Concomitant]
     Indication: DYSPEPSIA
     Dosage: 1 TABLET, TID
     Route: 048
     Dates: start: 20160404, end: 20160430
  22. TAXOL [Concomitant]
     Active Substance: PACLITAXEL
     Indication: CERVIX CARCINOMA
     Dosage: 177.9 MG, ONCE, CYCLE 11
     Route: 042
     Dates: start: 20160425, end: 20160425
  23. MOTILITONE [Concomitant]
     Active Substance: HERBALS
     Indication: DYSPEPSIA
     Dosage: 1 TABLET, TID
     Route: 048
     Dates: start: 20160429, end: 20160509
  24. LUTHIONE [Concomitant]
     Indication: PROPHYLAXIS
     Dosage: 1200 MG, ONCE
     Route: 042
     Dates: start: 20160423, end: 20160423
  25. TIROPA (TIROPRAMIDE HYDROCHLORIDE) [Concomitant]
     Indication: PROPHYLAXIS
     Dosage: 1 TABLET, 100 MG, TID
     Route: 048
     Dates: start: 20160430, end: 20160507
  26. TIROPA (TICLOPIDINE HYDROCHLORIDE) [Concomitant]
     Indication: PROPHYLAXIS
     Dosage: 1 AMP, QD
     Route: 042
     Dates: start: 20160429, end: 20160430
  27. CODEINE [Concomitant]
     Active Substance: CODEINE
     Indication: PAIN
     Dosage: 20 MG, 1 TABLET, TID
     Route: 048
     Dates: start: 20160426, end: 20160602
  28. TARGIN [Concomitant]
     Active Substance: NALOXONE HYDROCHLORIDE\OXYCODONE HYDROCHLORIDE
     Indication: PAIN
     Dosage: 1 TABLET, BID
     Route: 048
     Dates: start: 2016, end: 20160602
  29. VESICARE [Concomitant]
     Active Substance: SOLIFENACIN SUCCINATE
     Indication: PROPHYLAXIS
     Dosage: 1 TABLET, 5 MG, QD
     Route: 048
     Dates: start: 2016, end: 20160602

REACTIONS (3)
  - Pneumonia [Recovering/Resolving]
  - Diarrhoea [Recovered/Resolved]
  - Cough [Recovering/Resolving]

NARRATIVE: CASE EVENT DATE: 201605
